FAERS Safety Report 24022601 (Version 1)
Quarter: 2024Q2

REPORT INFORMATION
  Report Type: Spontaneous
  Country: GB (occurrence: GB)
  Receive Date: 20240627
  Receipt Date: 20240627
  Transmission Date: 20240716
  Serious: Yes (Death, Other)
  Sender: FDA-Public Use
  Company Number: GB-GERMAN-LIT/GBR/24/0008997

PATIENT

DRUGS (4)
  1. BORTEZOMIB [Suspect]
     Active Substance: BORTEZOMIB
     Indication: Plasma cell myeloma
     Dosage: SCHEDULED FOR 8 CYCLES FOR 32 DOSAGES
     Route: 058
  2. DARATUMUMAB [Concomitant]
     Active Substance: DARATUMUMAB
     Indication: Plasma cell myeloma
     Dosage: 1-3 WEEKLY, ON DAY 1 OF A THREE-WEEK CYCLE DURING CYCLES 4-8 AND THEN MONTHLY FROM CYCLE 9
     Route: 042
     Dates: end: 202006
  3. DARATUMUMAB [Concomitant]
     Active Substance: DARATUMUMAB
     Route: 058
  4. DEXAMETHASONE [Concomitant]
     Active Substance: DEXAMETHASONE
     Indication: Plasma cell myeloma
     Dosage: 40MG WEEKLY
     Dates: end: 202006

REACTIONS (2)
  - Plasma cell myeloma [Fatal]
  - Drug ineffective [Fatal]
